FAERS Safety Report 8974412 (Version 1)
Quarter: 2012Q4

REPORT INFORMATION
  Report Type: 
  Country: US (occurrence: US)
  Receive Date: 20121219
  Receipt Date: 20121219
  Transmission Date: 20130627
  Serious: No
  Sender: FDA-Public Use
  Company Number: US-AMGEN-USASP2012058519

PATIENT
  Age: 78 Year
  Sex: Female
  Weight: 48.18 kg

DRUGS (7)
  1. PROLIA [Suspect]
     Indication: OSTEOPOROSIS POSTMENOPAUSAL
     Dosage: UNK
     Dates: start: 20100915
  2. PREMARIN [Concomitant]
     Dosage: UNK
  3. ANTIHISTAMINE ALLERGY RELIEF [Concomitant]
     Dosage: UNK
  4. ENALAPRIL [Concomitant]
     Dosage: UNK
  5. COQ10 [Concomitant]
     Dosage: UNK
  6. GINGKOMIN [Concomitant]
     Dosage: UNK
  7. MULTIVITAMIN [Concomitant]
     Dosage: 3000 IU, qd

REACTIONS (4)
  - Weight decreased [Not Recovered/Not Resolved]
  - Vitamin D decreased [Recovering/Resolving]
  - Fatigue [Not Recovered/Not Resolved]
  - Asthenia [Not Recovered/Not Resolved]
